FAERS Safety Report 12186767 (Version 1)
Quarter: 2016Q1

REPORT INFORMATION
  Report Type: Spontaneous
  Country: US (occurrence: None)
  Receive Date: 20160316
  Receipt Date: 20160316
  Transmission Date: 20160526
  Serious: Yes (Death)
  Sender: FDA-Public Use
  Company Number: None

PATIENT
  Age: 65 Year
  Sex: Female

DRUGS (13)
  1. AMBRISENTAN [Concomitant]
     Active Substance: AMBRISENTAN
  2. PREDNISONE. [Concomitant]
     Active Substance: PREDNISONE
  3. METOLAZONE. [Concomitant]
     Active Substance: METOLAZONE
  4. LETAIRIS [Suspect]
     Active Substance: AMBRISENTAN
     Indication: CONNECTIVE TISSUE DISORDER
     Dates: start: 201402, end: 20160305
  5. SILDENAFIL. [Concomitant]
     Active Substance: SILDENAFIL
  6. FUROSEMIDE. [Concomitant]
     Active Substance: FUROSEMIDE
  7. OMEPRAZOLE. [Concomitant]
     Active Substance: OMEPRAZOLE
  8. ATORVASTATIN [Concomitant]
     Active Substance: ATORVASTATIN
  9. LETAIRIS [Suspect]
     Active Substance: AMBRISENTAN
     Indication: HEART DISEASE CONGENITAL
     Dates: start: 201402, end: 20160305
  10. BETAMETHASONE. [Concomitant]
     Active Substance: BETAMETHASONE
  11. ALENDRONATE [Concomitant]
     Active Substance: ALENDRONATE SODIUM
  12. PROPRANOLOL [Concomitant]
     Active Substance: PROPRANOLOL\PROPRANOLOL HYDROCHLORIDE
  13. LETAIRIS [Suspect]
     Active Substance: AMBRISENTAN
     Indication: PULMONARY ARTERIAL HYPERTENSION
     Dates: start: 201402, end: 20160305

REACTIONS (1)
  - Death [None]

NARRATIVE: CASE EVENT DATE: 20160305
